FAERS Safety Report 9795341 (Version 1)
Quarter: 2014Q1

REPORT INFORMATION
  Report Type: Spontaneous
  Country: NL (occurrence: NL)
  Receive Date: 20140103
  Receipt Date: 20140103
  Transmission Date: 20141002
  Serious: Yes (Death)
  Sender: FDA-Public Use
  Company Number: NL-AMGEN-NLDSP2013091505

PATIENT
  Age: 72 Year
  Sex: Male

DRUGS (1)
  1. NPLATE [Suspect]
     Indication: IMMUNE THROMBOCYTOPENIC PURPURA
     Dosage: 7 MUG/KG, QWK
     Route: 065

REACTIONS (1)
  - Death [Fatal]
